FAERS Safety Report 10214645 (Version 1)
Quarter: 2014Q2

REPORT INFORMATION
  Report Type: Report from Study
  Country: US (occurrence: US)
  Receive Date: 20140603
  Receipt Date: 20140603
  Transmission Date: 20141212
  Serious: Yes (Life-Threatening, Hospitalization, Other)
  Sender: FDA-Public Use
  Company Number: US-BRISTOL-MYERS SQUIBB COMPANY-20811535

PATIENT
  Age: 75 Year
  Sex: Male

DRUGS (1)
  1. ABATACEPT SUBQ INJECTION 125MG/ML [Suspect]
     Indication: RHEUMATOID ARTHRITIS
     Dosage: SECOND INJ ON 09-MAY-2014?THIRD INJ ON 16-MAY-2014
     Route: 058
     Dates: start: 20140502

REACTIONS (13)
  - Depressed level of consciousness [Unknown]
  - Loss of consciousness [Unknown]
  - Hypotension [Unknown]
  - Tachycardia [Unknown]
  - Dermatitis infected [Unknown]
  - Lung disorder [Unknown]
  - Pleural effusion [Unknown]
  - Lung consolidation [Unknown]
  - Peripheral swelling [Unknown]
  - Fatigue [Unknown]
  - Cough [Unknown]
  - Rhinorrhoea [Unknown]
  - Oropharyngeal pain [Unknown]
